FAERS Safety Report 12477997 (Version 1)
Quarter: 2016Q2

REPORT INFORMATION
  Report Type: Report from Study
  Country: US (occurrence: US)
  Receive Date: 20160617
  Receipt Date: 20160617
  Transmission Date: 20160815
  Serious: Yes (Hospitalization)
  Sender: FDA-Public Use
  Company Number: US-VERTEX PHARMACEUTICALS-2015-003742

PATIENT
  Age: 24 Year
  Sex: Female

DRUGS (14)
  1. AQUADEKS [Concomitant]
     Active Substance: MINERALS\VITAMINS
  2. TOBRAMYCIN. [Concomitant]
     Active Substance: TOBRAMYCIN
  3. ORKAMBI [Suspect]
     Active Substance: IVACAFTOR\LUMACAFTOR
     Indication: CYSTIC FIBROSIS
     Dosage: 2 DF, BID
     Route: 048
     Dates: start: 20150701, end: 20150828
  4. QNASL [Concomitant]
     Active Substance: BECLOMETHASONE DIPROPIONATE
  5. IRON [Concomitant]
     Active Substance: IRON
  6. PULMOZYME [Concomitant]
     Active Substance: DORNASE ALFA
  7. VITAMIN D [Concomitant]
     Active Substance: CHOLECALCIFEROL
  8. VITAMIN B12 [Concomitant]
     Active Substance: CYANOCOBALAMIN
  9. PERTZYE [Concomitant]
     Active Substance: PANCRELIPASE AMYLASE\PANCRELIPASE LIPASE\PANCRELIPASE PROTEASE
  10. AZITHROMYCIN ANHYDROUS. [Concomitant]
     Active Substance: AZITHROMYCIN ANHYDROUS
  11. MEPHYTON [Concomitant]
     Active Substance: PHYTONADIONE
  12. ORKAMBI [Suspect]
     Active Substance: IVACAFTOR\LUMACAFTOR
     Dosage: 1 DF, BID, REDUCED DOSE
     Route: 048
     Dates: start: 20151020, end: 20160315
  13. PEPCID [Concomitant]
     Active Substance: FAMOTIDINE
  14. AMETHIA [Concomitant]
     Active Substance: ETHINYL ESTRADIOL\LEVONORGESTREL

REACTIONS (2)
  - Vaginal haemorrhage [Not Recovered/Not Resolved]
  - International normalised ratio increased [Recovered/Resolved]

NARRATIVE: CASE EVENT DATE: 20150826
